FAERS Safety Report 4918729-5 (Version None)
Quarter: 2006Q1

REPORT INFORMATION
  Report Type: 
  Country: None (occurrence: None)
  Receive Date: 20060216
  Receipt Date: 20060208
  Transmission Date: 20060701
  Serious: Yes (Other)
  Sender: FDA-Public Use
  Company Number: 2006000269

PATIENT
  Sex: Male

DRUGS (2)
  1. GEODON [Suspect]
     Indication: SCHIZOPHRENIA
     Dosage: 160 MG (80 MG, 2 IN 1 D)
     Dates: start: 20051102
  2. RISPERDAL [Suspect]
     Indication: SCHIZOPHRENIA
     Dosage: 1.5 MG (1.5 MG, 1 IN 1 D)

REACTIONS (10)
  - CONDITION AGGRAVATED [None]
  - DEPRESSION [None]
  - ENERGY INCREASED [None]
  - INITIAL INSOMNIA [None]
  - INSOMNIA [None]
  - MOOD SWINGS [None]
  - OBSESSIVE-COMPULSIVE DISORDER [None]
  - PARANOIA [None]
  - SPOUSAL ABUSE [None]
  - TACHYPHRENIA [None]
